FAERS Safety Report 6659574-2 (Version None)
Quarter: 2010Q1

REPORT INFORMATION
  Report Type: 
  Country: None (occurrence: None)
  Receive Date: 20100330
  Receipt Date: 20100312
  Transmission Date: 20100710
  Serious: Yes (Death)
  Sender: FDA-Public Use
  Company Number: PHHY2010TN05620

PATIENT
  Sex: Female
  Weight: 73 kg

DRUGS (3)
  1. GLEEVEC [Suspect]
     Indication: GASTROINTESTINAL STROMAL TUMOUR
     Dosage: 400 MG/DAY
     Route: 048
     Dates: start: 20100201, end: 20100208
  2. GLEEVEC [Suspect]
     Dosage: 400 MG/ DAY
     Route: 048
     Dates: start: 20091103, end: 20100125
  3. MORONTIN [Concomitant]
     Indication: ABDOMINAL PAIN UPPER
     Dosage: 30 MG X 2
     Dates: start: 20100208

REACTIONS (3)
  - ABDOMINAL PAIN UPPER [None]
  - DEATH [None]
  - RASH [None]
